FAERS Safety Report 4998094-8 (Version None)
Quarter: 2006Q2

REPORT INFORMATION
  Report Type: 
  Country: None (occurrence: None)
  Receive Date: 20060510
  Receipt Date: 20051004
  Transmission Date: 20061013
  Serious: Yes (Hospitalization)
  Sender: FDA-Public Use
  Company Number: US-MERCK-0510USA03524

PATIENT
  Age: 64 Year
  Sex: Male
  Weight: 84 kg

DRUGS (2)
  1. VIOXX [Suspect]
     Indication: ARTHRALGIA
     Route: 048
     Dates: start: 20010130, end: 20040101
  2. VIOXX [Suspect]
     Indication: ARTHRITIS
     Route: 048
     Dates: start: 20010130, end: 20040101

REACTIONS (2)
  - ARTERIOSCLEROSIS CORONARY ARTERY [None]
  - MYOCARDIAL INFARCTION [None]
